FAERS Safety Report 4869813-6 (Version None)
Quarter: 2005Q4

REPORT INFORMATION
  Report Type: 
  Country: None (occurrence: None)
  Receive Date: 20051223
  Receipt Date: 20051221
  Transmission Date: 20060501
  Serious: Yes (Hospitalization)
  Sender: FDA-Public Use
  Company Number: S05-USA-05245-01

PATIENT
  Age: 46 Year
  Sex: Male

DRUGS (2)
  1. CAMPRAL [Suspect]
     Indication: ALCOHOLISM
     Dosage: 666 MG TID PO
     Route: 048
     Dates: start: 20050101, end: 20050901
  2. GEODON [Concomitant]

REACTIONS (9)
  - AMMONIA INCREASED [None]
  - ARRHYTHMIA [None]
  - BLOOD CREATINE PHOSPHOKINASE INCREASED [None]
  - C-REACTIVE PROTEIN INCREASED [None]
  - CARNITINE DEFICIENCY [None]
  - COMA [None]
  - HYPOGLYCAEMIA [None]
  - MENTAL STATUS CHANGES [None]
  - RHABDOMYOLYSIS [None]
